FAERS Safety Report 5470107-9 (Version None)
Quarter: 2007Q3

REPORT INFORMATION
  Report Type: 
  Country: None (occurrence: None)
  Receive Date: 20070927
  Receipt Date: 20060905
  Transmission Date: 20080115
  Serious: No
  Sender: FDA-Public Use
  Company Number: US-AMGEN-KDL192341

PATIENT
  Sex: Female

DRUGS (4)
  1. NEUPOGEN [Suspect]
     Indication: NEUTROPENIA
     Route: 065
     Dates: start: 20060831, end: 20060831
  2. PREDNISONE [Concomitant]
     Route: 065
  3. ADVIL LIQUI-GELS [Concomitant]
     Route: 065
  4. METHOTREXATE [Concomitant]
     Route: 065

REACTIONS (7)
  - CHILLS [None]
  - CONDITION AGGRAVATED [None]
  - COUGH [None]
  - DYSPNOEA [None]
  - PYREXIA [None]
  - RHEUMATOID ARTHRITIS [None]
  - STOMATITIS [None]
